FAERS Safety Report 7442650-4 (Version None)
Quarter: 2011Q2

REPORT INFORMATION
  Report Type: 
  Country: None (occurrence: None)
  Receive Date: 20110426
  Receipt Date: 20110426
  Transmission Date: 20111010
  Serious: Yes (Hospitalization)
  Sender: FDA-Public Use
  Company Number: None

PATIENT
  Sex: Male
  Weight: 98 kg

DRUGS (2)
  1. CISPLATIN [Suspect]
     Dosage: 160 MG
     Dates: end: 20110404
  2. ETOPOSIDE [Suspect]
     Dosage: 645 MG
     Dates: end: 20110406

REACTIONS (4)
  - ILL-DEFINED DISORDER [None]
  - RENAL FAILURE ACUTE [None]
  - WEIGHT DECREASED [None]
  - ASTHENIA [None]
